FAERS Safety Report 24379339 (Version 6)
Quarter: 2024Q4

REPORT INFORMATION
  Report Type: Spontaneous
  Country: US (occurrence: US)
  Receive Date: 20240930
  Receipt Date: 20241227
  Transmission Date: 20250115
  Serious: No
  Sender: KARYOPHARM THERAPEUTICS
  Company Number: US-KARYOPHARM-2024KPT001578

PATIENT

DRUGS (12)
  1. XPOVIO [Suspect]
     Active Substance: SELINEXOR
     Indication: Plasma cell myeloma
     Dosage: 80 MG, WEEKLY
     Route: 048
     Dates: start: 20240923, end: 2024
  2. KYPROLIS [Concomitant]
     Active Substance: CARFILZOMIB
  3. DEXAMETHASONE [Concomitant]
     Active Substance: DEXAMETHASONE
  4. ACYCLOVIR [Concomitant]
     Active Substance: ACYCLOVIR
  5. LIPITOR [Concomitant]
     Active Substance: ATORVASTATIN CALCIUM
  6. ATOVAQUONE [Concomitant]
     Active Substance: ATOVAQUONE
  7. NEXIUM I.V. [Concomitant]
     Active Substance: ESOMEPRAZOLE SODIUM
  8. SINGULAIR [Concomitant]
     Active Substance: MONTELUKAST SODIUM
  9. OXYCODONE [Concomitant]
     Active Substance: OXYCODONE
  10. LYRICA [Concomitant]
     Active Substance: PREGABALIN
  11. AMBIEN [Concomitant]
     Active Substance: ZOLPIDEM TARTRATE
  12. COMPAZINE [Concomitant]
     Active Substance: PROCHLORPERAZINE MALEATE

REACTIONS (7)
  - Abdominal pain [Not Recovered/Not Resolved]
  - Feeling abnormal [Recovered/Resolved]
  - COVID-19 [Recovering/Resolving]
  - Nausea [Recovered/Resolved]
  - Decreased appetite [Unknown]
  - Diarrhoea [Unknown]
  - Vomiting [Unknown]

NARRATIVE: CASE EVENT DATE: 20240101
